FAERS Safety Report 16314504 (Version 1)
Quarter: 2019Q2

REPORT INFORMATION
  Report Type: Spontaneous
  Country: US (occurrence: US)
  Receive Date: 20190515
  Receipt Date: 20190515
  Transmission Date: 20190711
  Serious: Yes (Other)
  Sender: FDA-Public Use
  Company Number: US-JNJFOC-20190510223

PATIENT
  Sex: Male
  Weight: 88.45 kg

DRUGS (1)
  1. DURAGESIC [Suspect]
     Active Substance: FENTANYL
     Indication: PAIN
     Route: 062
     Dates: start: 200805

REACTIONS (2)
  - Asthma [Not Recovered/Not Resolved]
  - Hip arthroplasty [Unknown]

NARRATIVE: CASE EVENT DATE: 2019
